FAERS Safety Report 8428315-0 (Version None)
Quarter: 2012Q2

REPORT INFORMATION
  Report Type: 
  Country: None (occurrence: None)
  Receive Date: 20120611
  Receipt Date: 20120607
  Transmission Date: 20120825
  Serious: Yes (Other)
  Sender: FDA-Public Use
  Company Number: CA-AMGEN-CANSP2012035587

PATIENT
  Age: 43 Year
  Sex: Female

DRUGS (1)
  1. PROLIA [Suspect]
     Indication: PRODUCT USED FOR UNKNOWN INDICATION
     Dosage: 60 MG, Q6MO
     Route: 058
     Dates: start: 20120501

REACTIONS (5)
  - RAYNAUD'S PHENOMENON [None]
  - JOINT STIFFNESS [None]
  - BACK PAIN [None]
  - AFFECTIVE DISORDER [None]
  - ARTHRALGIA [None]
